FAERS Safety Report 25681605 (Version 1)
Quarter: 2025Q3

REPORT INFORMATION
  Report Type: Spontaneous
  Country: EU (occurrence: EU)
  Receive Date: 20250814
  Receipt Date: 20250814
  Transmission Date: 20251021
  Serious: Yes (Other)
  Sender: RANBAXY
  Company Number: EU-SUN PHARMACEUTICAL INDUSTRIES LTD-2025RR-522707

PATIENT
  Age: 26 Year
  Sex: Female

DRUGS (7)
  1. LEVETIRACETAM [Suspect]
     Active Substance: LEVETIRACETAM
     Indication: Partial seizures
     Route: 065
  2. MIDAZOLAM [Suspect]
     Active Substance: MIDAZOLAM
     Indication: Status epilepticus
     Route: 065
  3. DIAZEPAM [Suspect]
     Active Substance: DIAZEPAM
     Indication: Partial seizures
     Route: 065
  4. VALPROIC ACID [Suspect]
     Active Substance: VALPROIC ACID
     Indication: Partial seizures
     Route: 065
  5. METHYLPREDNISOLONE [Suspect]
     Active Substance: METHYLPREDNISOLONE
     Indication: Partial seizures
     Route: 065
  6. LACOSAMIDE [Suspect]
     Active Substance: LACOSAMIDE
     Indication: Partial seizures
     Route: 065
  7. PHENYTOIN [Suspect]
     Active Substance: PHENYTOIN
     Indication: Status epilepticus
     Route: 065

REACTIONS (2)
  - Drug ineffective [Unknown]
  - Drug resistance [Unknown]
